FAERS Safety Report 4781447-0 (Version None)
Quarter: 2005Q3

REPORT INFORMATION
  Report Type: 
  Country: None (occurrence: None)
  Receive Date: 20050928
  Receipt Date: 20050921
  Transmission Date: 20060218
  Serious: Yes (Death)
  Sender: FDA-Public Use
  Company Number: US-MERCK-0509USA03250

PATIENT
  Sex: Male
  Weight: 83 kg

DRUGS (5)
  1. VIOXX [Suspect]
     Indication: BACK DISORDER
     Route: 048
     Dates: start: 20000215, end: 20030902
  2. PRAVACHOL [Concomitant]
     Route: 065
  3. AMARYL [Concomitant]
     Route: 065
  4. LIPITOR [Concomitant]
     Route: 065
  5. [THERAPY UNSPECIFIED] [Concomitant]
     Route: 065

REACTIONS (1)
  - MYOCARDIAL INFARCTION [None]
